FAERS Safety Report 9272968 (Version 3)
Quarter: 2013Q2

REPORT INFORMATION
  Report Type: Spontaneous
  Country: GB (occurrence: GB)
  Receive Date: 20130506
  Receipt Date: 20130605
  Transmission Date: 20140414
  Serious: Yes (Death)
  Sender: FDA-Public Use
  Company Number: GB-GILEAD-2013-0074660

PATIENT
  Age: 89 Year
  Sex: Female

DRUGS (11)
  1. RANOLAZINE [Suspect]
     Indication: PRODUCT USED FOR UNKNOWN INDICATION
     Dosage: 375 MG, BID
     Dates: start: 20120113, end: 20120204
  2. ASPIRIN [Concomitant]
     Dosage: 75 MG, QD
     Route: 048
  3. CLOPIDOGREL [Concomitant]
     Dosage: 75 MG, QD
     Route: 048
  4. AMLODIPINE [Concomitant]
     Dosage: 5 MG, BID
  5. SPIRONOLACTONE [Concomitant]
     Dosage: 25 MG, QD
     Route: 048
  6. RAMIPRIL [Concomitant]
     Dosage: 2.5 MG, QD
     Route: 048
  7. IVABRADINE [Concomitant]
     Dosage: 7.5 MG, BID
  8. ISOSORBIDE MONONITRATE [Concomitant]
     Dosage: 60 MG, QD
     Route: 048
  9. ADCAL D3 [Concomitant]
     Dosage: UNK, BID
  10. ACITRETIN [Concomitant]
     Dosage: 25 MG, 3X1WEEK
  11. LEVOTHYROXINE [Concomitant]
     Dosage: 50 ?G, QD
     Route: 048

REACTIONS (1)
  - Cardiac failure [Fatal]
